FAERS Safety Report 9837437 (Version 1)
Quarter: 2014Q1

REPORT INFORMATION
  Report Type: Spontaneous
  Country: US (occurrence: None)
  Receive Date: 20140117
  Receipt Date: 20140117
  Transmission Date: 20141002
  Serious: Yes (Life-Threatening)
  Sender: FDA-Public Use
  Company Number: None

PATIENT
  Age: 58 Year
  Sex: Male
  Weight: 74.84 kg

DRUGS (1)
  1. NORCO [Suspect]
     Indication: SPINAL FUSION SURGERY
     Dosage: 60 MG PER DAY  6 PILS PER DAY  TAKEN BY MOUTH
     Route: 048
     Dates: start: 20140108, end: 20140114

REACTIONS (12)
  - Abdominal pain upper [None]
  - Diarrhoea [None]
  - Decreased appetite [None]
  - Major depression [None]
  - Pain [None]
  - Confusional state [None]
  - Insomnia [None]
  - Bedridden [None]
  - Drug ineffective [None]
  - Drug withdrawal syndrome [None]
  - Product quality issue [None]
  - Product substitution issue [None]
